FAERS Safety Report 24990492 (Version 2)
Quarter: 2025Q1

REPORT INFORMATION
  Report Type: Spontaneous
  Country: US (occurrence: US)
  Receive Date: 20250220
  Receipt Date: 20250222
  Transmission Date: 20250409
  Serious: Yes (Other)
  Sender: UNITED THERAPEUTICS
  Company Number: US-UNITED THERAPEUTICS-UNT-2025-004632

PATIENT
  Sex: Female

DRUGS (4)
  1. REMODULIN [Suspect]
     Active Substance: TREPROSTINIL
     Indication: Pulmonary arterial hypertension
  2. REMODULIN [Suspect]
     Active Substance: TREPROSTINIL
  3. OPSUMIT [Suspect]
     Active Substance: MACITENTAN
     Indication: Pulmonary arterial hypertension
  4. LETAIRIS [Suspect]
     Active Substance: AMBRISENTAN
     Indication: Pulmonary arterial hypertension

REACTIONS (18)
  - Dyspnoea [Recovered/Resolved]
  - Carditis [Not Recovered/Not Resolved]
  - Vaginal haemorrhage [Recovered/Resolved]
  - Mental disorder [Unknown]
  - Anxiety [Unknown]
  - Dizziness [Recovered/Resolved]
  - Illness [Recovered/Resolved]
  - Drug hypersensitivity [Not Recovered/Not Resolved]
  - Emotional disorder [Not Recovered/Not Resolved]
  - Joint swelling [Not Recovered/Not Resolved]
  - Headache [Not Recovered/Not Resolved]
  - Diarrhoea [Not Recovered/Not Resolved]
  - Nausea [Not Recovered/Not Resolved]
  - Hyperhidrosis [Recovered/Resolved]
  - Chest pain [Recovered/Resolved]
  - Patient-device incompatibility [Not Recovered/Not Resolved]
  - Incorrect drug administration rate [Recovered/Resolved]
  - Device programming error [Recovered/Resolved]

NARRATIVE: CASE EVENT DATE: 20230101
